FAERS Safety Report 5301762-1 (Version None)
Quarter: 2007Q2

REPORT INFORMATION
  Report Type: 
  Country: None (occurrence: None)
  Receive Date: 20070419
  Receipt Date: 20070409
  Transmission Date: 20071010
  Serious: Yes (Other)
  Sender: FDA-Public Use
  Company Number: US-JNJFOC-20070402130

PATIENT
  Age: 29 Year
  Sex: Female

DRUGS (5)
  1. TOPAMAX [Suspect]
     Indication: EPILEPSY
  2. LEXAPRO [Interacting]
     Indication: BIPOLAR I DISORDER
  3. SEROQUEL [Interacting]
     Indication: BIPOLAR DISORDER
  4. KLONOPIN [Interacting]
     Indication: BIPOLAR DISORDER
  5. DEPAKOTE [Interacting]
     Indication: EPILEPSY

REACTIONS (5)
  - DEHYDRATION [None]
  - DRUG INTERACTION [None]
  - DRY EYE [None]
  - DYSPHAGIA [None]
  - TREMOR [None]
